FAERS Safety Report 7283765-3 (Version None)
Quarter: 2011Q1

REPORT INFORMATION
  Report Type: 
  Country: None (occurrence: None)
  Receive Date: 20110209
  Receipt Date: 20110131
  Transmission Date: 20110831
  Serious: Yes (Hospitalization)
  Sender: FDA-Public Use
  Company Number: US-RB-020330-11

PATIENT
  Age: 24 Month
  Sex: Female
  Weight: 13 kg

DRUGS (1)
  1. DELSYM [Suspect]
     Dosage: PATIENT DRANK ENTIRE BOTTLE
     Route: 048

REACTIONS (5)
  - OVERDOSE [None]
  - PYREXIA [None]
  - SWELLING [None]
  - RASH [None]
  - SOMNOLENCE [None]
